FAERS Safety Report 12411229 (Version 1)
Quarter: 2016Q2

REPORT INFORMATION
  Report Type: Spontaneous
  Country: US (occurrence: None)
  Receive Date: 20160526
  Receipt Date: 20160526
  Transmission Date: 20160815
  Serious: Yes (Disabling)
  Sender: FDA-Public Use
  Company Number: None

PATIENT
  Age: 54 Year
  Sex: Male
  Weight: 136.08 kg

DRUGS (25)
  1. NEPHRON [Concomitant]
  2. ADVIL [Concomitant]
     Active Substance: IBUPROFEN
  3. LORATADINE. [Concomitant]
     Active Substance: LORATADINE
  4. ALBUTEROL. [Concomitant]
     Active Substance: ALBUTEROL
  5. LASIX [Concomitant]
     Active Substance: FUROSEMIDE
  6. KLOR-CON [Concomitant]
     Active Substance: POTASSIUM CHLORIDE
  7. LEVOFLOXACIN. [Concomitant]
     Active Substance: LEVOFLOXACIN
  8. EXCEDRIN [Concomitant]
     Active Substance: ACETAMINOPHEN\ASPIRIN\CAFFEINE
  9. METOPROLOL TART [Concomitant]
     Active Substance: METOPROLOL TARTRATE
  10. CELEXA [Concomitant]
     Active Substance: CITALOPRAM HYDROBROMIDE
  11. STIOLTO-RESPIMAT [Concomitant]
  12. PREDNISONE. [Concomitant]
     Active Substance: PREDNISONE
  13. PROAIR HFA (ALBUTROL SULFATE [Concomitant]
  14. NAPROXEN. [Concomitant]
     Active Substance: NAPROXEN
  15. LISINPRIL [Concomitant]
  16. NITROSTAT [Concomitant]
     Active Substance: NITROGLYCERIN
  17. PULMICORT TURBUHALER [Suspect]
     Active Substance: BUDESONIDE
     Indication: WHEEZING
     Dosage: 2 PUFFS MORNING + NIGHT MOUTH INHALEID
     Route: 055
     Dates: end: 20160405
  18. VITAMIN D3 [Concomitant]
     Active Substance: CHOLECALCIFEROL
  19. BAYER LOW DOSE [Concomitant]
     Active Substance: ASPIRIN
  20. SINGULAIR [Concomitant]
     Active Substance: MONTELUKAST SODIUM
  21. PRAVASTATIN [Concomitant]
     Active Substance: PRAVASTATIN\PRAVASTATIN SODIUM
  22. ALEAVE [Concomitant]
  23. OSTEO BI-FLEX [Concomitant]
     Active Substance: CHONDROITIN SULFATE A\GLUCOSAMINE
  24. OMEPRAZOLE. [Concomitant]
     Active Substance: OMEPRAZOLE
  25. SYMBICORT [Concomitant]
     Active Substance: BUDESONIDE\FORMOTEROL FUMARATE DIHYDRATE

REACTIONS (7)
  - Tongue discolouration [None]
  - Dry mouth [None]
  - Dizziness [None]
  - Feeling of body temperature change [None]
  - Muscle spasms [None]
  - Sleep disorder [None]
  - Headache [None]
